FAERS Safety Report 6196062-4 (Version None)
Quarter: 2009Q2

REPORT INFORMATION
  Report Type: 
  Country: None (occurrence: None)
  Receive Date: 20090520
  Receipt Date: 20090507
  Transmission Date: 20091009
  Serious: Yes (Disabling, Other)
  Sender: FDA-Public Use
  Company Number: US-PFIZER INC-2004014973

PATIENT
  Sex: Female

DRUGS (7)
  1. ZOLOFT [Suspect]
     Route: 065
  2. CELEBREX [Suspect]
     Route: 065
  3. NEURONTIN [Suspect]
     Route: 065
  4. LIPITOR [Suspect]
     Route: 065
  5. ZYRTEC [Suspect]
     Route: 065
  6. GLUCOTROL [Suspect]
     Route: 065
  7. BEXTRA [Concomitant]
     Route: 065

REACTIONS (13)
  - COMA [None]
  - DEPENDENCE ON ENABLING MACHINE OR DEVICE [None]
  - DIABETES MELLITUS [None]
  - DISABILITY [None]
  - FALL [None]
  - GANGRENE [None]
  - NERVOUS SYSTEM DISORDER [None]
  - PAIN [None]
  - POST PROCEDURAL DISCHARGE [None]
  - STAPHYLOCOCCAL INFECTION [None]
  - UMBILICAL HERNIA REPAIR [None]
  - UNEVALUABLE EVENT [None]
  - WEIGHT INCREASED [None]
